FAERS Safety Report 17082236 (Version 1)
Quarter: 2019Q4

REPORT INFORMATION
  Report Type: Spontaneous
  Country: CA (occurrence: CA)
  Receive Date: 20191127
  Receipt Date: 20191127
  Transmission Date: 20200122
  Serious: Yes (Hospitalization, Other)
  Sender: FDA-Public Use
  Company Number: CA-PFIZER INC-2019416587

PATIENT
  Age: 68 Year
  Sex: Male
  Weight: 100.4 kg

DRUGS (1)
  1. BOSULIF [Suspect]
     Active Substance: BOSUTINIB MONOHYDRATE
     Indication: CHRONIC MYELOID LEUKAEMIA
     Dosage: 300 MG, 1X/DAY X 4 WEEKS
     Route: 048
     Dates: start: 20191007

REACTIONS (2)
  - Liver function test increased [Unknown]
  - Myocardial infarction [Unknown]
